FAERS Safety Report 15598349 (Version 1)
Quarter: 2018Q4

REPORT INFORMATION
  Report Type: Spontaneous
  Country: DE (occurrence: DE)
  Receive Date: 20181108
  Receipt Date: 20181108
  Transmission Date: 20190205
  Serious: Yes (Death, Hospitalization, Other)
  Sender: FDA-Public Use
  Company Number: DE-SA-2018SA303403

PATIENT
  Age: 19 Year
  Sex: Female

DRUGS (28)
  1. BORTEZOMIB. [Suspect]
     Active Substance: BORTEZOMIB
     Indication: COOMBS POSITIVE HAEMOLYTIC ANAEMIA
     Dosage: UNK
  2. METHYLPREDNISOLONE. [Suspect]
     Active Substance: METHYLPREDNISOLONE
     Indication: COOMBS POSITIVE HAEMOLYTIC ANAEMIA
     Dosage: UNK
  3. ANTI-THYMOCYTE GLOBULIN (RABBIT) NOS [Suspect]
     Active Substance: LAPINE T-LYMPHOCYTE IMMUNE GLOBULIN
     Indication: AUTOIMMUNE HAEMOLYTIC ANAEMIA
  4. RITUXIMAB. [Suspect]
     Active Substance: RITUXIMAB
     Indication: AUTOIMMUNE HAEMOLYTIC ANAEMIA
     Dosage: 375 MG/M2
  5. BORTEZOMIB. [Suspect]
     Active Substance: BORTEZOMIB
     Indication: IMMUNOSUPPRESSANT DRUG THERAPY
     Dosage: UNK
  6. ANTI-THYMOCYTE GLOBULIN (RABBIT) NOS [Suspect]
     Active Substance: LAPINE T-LYMPHOCYTE IMMUNE GLOBULIN
     Indication: IMMUNOSUPPRESSANT DRUG THERAPY
  7. ALEMTUZUMAB [Suspect]
     Active Substance: ALEMTUZUMAB
     Indication: COOMBS POSITIVE HAEMOLYTIC ANAEMIA
     Dosage: UNK
  8. RITUXIMAB. [Suspect]
     Active Substance: RITUXIMAB
     Indication: IMMUNOSUPPRESSANT DRUG THERAPY
     Dosage: UNK
  9. SIROLIMUS. [Suspect]
     Active Substance: SIROLIMUS
     Indication: AUTOIMMUNE HAEMOLYTIC ANAEMIA
     Dosage: UNK
  10. MYCOPHENOLATE MOFETIL. [Suspect]
     Active Substance: MYCOPHENOLATE MOFETIL
     Indication: AUTOIMMUNE HAEMOLYTIC ANAEMIA
  11. CYCLOPHOSPHAMIDE. [Suspect]
     Active Substance: CYCLOPHOSPHAMIDE
     Indication: AUTOIMMUNE HAEMOLYTIC ANAEMIA
  12. CYCLOPHOSPHAMIDE. [Suspect]
     Active Substance: CYCLOPHOSPHAMIDE
     Indication: IMMUNOSUPPRESSANT DRUG THERAPY
  13. ANTI-THYMOCYTE GLOBULIN (RABBIT) NOS [Suspect]
     Active Substance: LAPINE T-LYMPHOCYTE IMMUNE GLOBULIN
     Indication: COOMBS POSITIVE HAEMOLYTIC ANAEMIA
     Dosage: UNK
  14. ALEMTUZUMAB [Suspect]
     Active Substance: ALEMTUZUMAB
     Indication: AUTOIMMUNE HAEMOLYTIC ANAEMIA
  15. SIROLIMUS. [Suspect]
     Active Substance: SIROLIMUS
     Indication: IMMUNOSUPPRESSANT DRUG THERAPY
  16. IBRUTINIB [Suspect]
     Active Substance: IBRUTINIB
     Indication: COOMBS POSITIVE HAEMOLYTIC ANAEMIA
  17. BORTEZOMIB. [Suspect]
     Active Substance: BORTEZOMIB
     Indication: AUTOIMMUNE HAEMOLYTIC ANAEMIA
     Dosage: 4 X 1.3 MG/M2
  18. MYCOPHENOLATE MOFETIL. [Suspect]
     Active Substance: MYCOPHENOLATE MOFETIL
     Indication: COOMBS POSITIVE HAEMOLYTIC ANAEMIA
     Dosage: UNK
  19. MYCOPHENOLATE MOFETIL. [Suspect]
     Active Substance: MYCOPHENOLATE MOFETIL
     Indication: IMMUNOSUPPRESSANT DRUG THERAPY
  20. ALEMTUZUMAB [Suspect]
     Active Substance: ALEMTUZUMAB
     Indication: IMMUNOSUPPRESSANT DRUG THERAPY
     Dosage: UNK
  21. RITUXIMAB. [Suspect]
     Active Substance: RITUXIMAB
     Indication: COOMBS POSITIVE HAEMOLYTIC ANAEMIA
     Dosage: UNK
  22. SIROLIMUS. [Suspect]
     Active Substance: SIROLIMUS
     Indication: COOMBS POSITIVE HAEMOLYTIC ANAEMIA
  23. METHYLPREDNISOLONE. [Suspect]
     Active Substance: METHYLPREDNISOLONE
     Indication: AUTOIMMUNE HAEMOLYTIC ANAEMIA
  24. METHYLPREDNISOLONE. [Suspect]
     Active Substance: METHYLPREDNISOLONE
     Indication: IMMUNOSUPPRESSANT DRUG THERAPY
     Dosage: UNK
  25. CYCLOPHOSPHAMIDE. [Suspect]
     Active Substance: CYCLOPHOSPHAMIDE
     Indication: MINIMAL RESIDUAL DISEASE
     Dosage: UNK
  26. CYCLOPHOSPHAMIDE. [Suspect]
     Active Substance: CYCLOPHOSPHAMIDE
     Indication: COOMBS POSITIVE HAEMOLYTIC ANAEMIA
  27. IBRUTINIB [Suspect]
     Active Substance: IBRUTINIB
     Indication: AUTOIMMUNE HAEMOLYTIC ANAEMIA
     Dosage: UNK
  28. IBRUTINIB [Suspect]
     Active Substance: IBRUTINIB
     Indication: IMMUNOSUPPRESSANT DRUG THERAPY

REACTIONS (4)
  - Disease recurrence [Fatal]
  - Autoimmune haemolytic anaemia [Fatal]
  - Drug ineffective [Fatal]
  - Off label use [Unknown]
